FAERS Safety Report 20866281 (Version 4)
Quarter: 2022Q3

REPORT INFORMATION
  Report Type: Spontaneous
  Country: FR (occurrence: FR)
  Receive Date: 20220524
  Receipt Date: 20220726
  Transmission Date: 20221027
  Serious: Yes (Death, Life-Threatening, Hospitalization, Other)
  Sender: FDA-Public Use
  Company Number: FR-MACLEODS PHARMACEUTICALS US LTD-MAC2022035680

PATIENT

DRUGS (4)
  1. TRAMADOL [Suspect]
     Active Substance: TRAMADOL
     Indication: Product used for unknown indication
     Dosage: 9000 MILLIGRAM, SINGLE (TOTAL), SUSTAINED-RELEASE
     Route: 048
  2. AMITRIPTYLINE [Concomitant]
     Active Substance: AMITRIPTYLINE
     Indication: Depression
     Dosage: UNK
     Route: 065
  3. LORMETAZEPAM [Concomitant]
     Active Substance: LORMETAZEPAM
     Indication: Depression
     Route: 065
  4. GABAPENTIN [Concomitant]
     Active Substance: GABAPENTIN
     Indication: Depression
     Dosage: UNK
     Route: 065

REACTIONS (20)
  - Brain death [Fatal]
  - Brain injury [Fatal]
  - Brain oedema [Fatal]
  - Cerebral vasoconstriction [Fatal]
  - Coma [Fatal]
  - Encephalopathy [Fatal]
  - Eyelid myoclonus [Fatal]
  - Mydriasis [Fatal]
  - Toxicity to various agents [Fatal]
  - Bradypnoea [Fatal]
  - Cerebral infarction [Fatal]
  - Alanine aminotransferase increased [Fatal]
  - Blood creatine phosphokinase increased [Fatal]
  - Pneumonia aspiration [Fatal]
  - Cytotoxic oedema [Fatal]
  - Blood creatinine increased [Fatal]
  - Cerebral haemorrhage [Fatal]
  - Hypoxia [Fatal]
  - Hypotension [Fatal]
  - Intentional overdose [Fatal]
